FAERS Safety Report 11604103 (Version 1)
Quarter: 2015Q4

REPORT INFORMATION
  Report Type: Spontaneous
  Country: US (occurrence: None)
  Receive Date: 20151006
  Receipt Date: 20151006
  Transmission Date: 20160304
  Serious: Yes (Life-Threatening, Other)
  Sender: FDA-Public Use
  Company Number: None

PATIENT
  Age: 49 Year
  Sex: Female
  Weight: 50.35 kg

DRUGS (1)
  1. DICLOFENAC SOD EC 75MG TAB [Suspect]
     Active Substance: DICLOFENAC SODIUM
     Indication: ROTATOR CUFF SYNDROME
     Route: 048
     Dates: start: 20150917, end: 20150921

REACTIONS (3)
  - Homicidal ideation [None]
  - Aggression [None]
  - Musculoskeletal pain [None]

NARRATIVE: CASE EVENT DATE: 20150921
